FAERS Safety Report 23779089 (Version 1)
Quarter: 2024Q2

REPORT INFORMATION
  Report Type: Spontaneous
  Country: US (occurrence: US)
  Receive Date: 20240424
  Receipt Date: 20240424
  Transmission Date: 20240716
  Serious: Yes (Other)
  Sender: FDA-Public Use
  Company Number: US-UPSHER-SMITH LABORATORIES, LLC-2023USL00517

PATIENT
  Age: 52 Year
  Sex: Female

DRUGS (9)
  1. TOPIRAMATE [Suspect]
     Active Substance: TOPIRAMATE
     Indication: Migraine prophylaxis
     Dosage: 200 MG, 1X/DAY AT BEDTIME
     Route: 048
     Dates: start: 20221207, end: 202212
  2. TOPIRAMATE [Suspect]
     Active Substance: TOPIRAMATE
     Indication: Headache
     Dosage: 200 MG, 1X/DAY AT BEDTIME
     Route: 048
     Dates: start: 202212, end: 20221211
  3. UNSPECIFIED INGREDIENT [Suspect]
     Active Substance: UNSPECIFIED INGREDIENT
  4. SYNTHROID [Concomitant]
     Active Substance: LEVOTHYROXINE SODIUM
  5. ASPIRIN [Concomitant]
     Active Substance: ASPIRIN
  6. LOVASTATIN [Concomitant]
     Active Substance: LOVASTATIN
  7. VITAMIN D NOS [Concomitant]
     Active Substance: VITAMIN D NOS
  8. CETIRIZINE [Concomitant]
     Active Substance: CETIRIZINE HYDROCHLORIDE
  9. NIFEDIPINE [Concomitant]
     Active Substance: NIFEDIPINE

REACTIONS (6)
  - Dyspnoea [Recovered/Resolved]
  - Alopecia [Not Recovered/Not Resolved]
  - Rash papular [Recovered/Resolved]
  - Pruritus [Recovered/Resolved]
  - Depression [Not Recovered/Not Resolved]
  - Unevaluable event [Recovered/Resolved]

NARRATIVE: CASE EVENT DATE: 20221201
